FAERS Safety Report 8414054-9 (Version None)
Quarter: 2012Q2

REPORT INFORMATION
  Report Type: 
  Country: None (occurrence: None)
  Receive Date: 20120605
  Receipt Date: 20120529
  Transmission Date: 20120825
  Serious: Yes (Other)
  Sender: FDA-Public Use
  Company Number: US-JNJFOC-20120520616

PATIENT
  Age: 84 Year
  Sex: Female
  Weight: 68.04 kg

DRUGS (22)
  1. IMODIUM MULTI-SYMPTOM RELIEF [Suspect]
     Route: 048
     Dates: start: 20120529, end: 20120529
  2. FOLIC ACID [Concomitant]
     Indication: MEDICAL DIET
     Route: 065
  3. COZAAR [Concomitant]
     Indication: HYPERTENSION
     Dosage: YEARS
     Route: 065
  4. ARICEPT [Concomitant]
     Indication: AMNESIA
     Dosage: YEARS
     Route: 065
  5. VITAMIN D [Concomitant]
     Route: 065
  6. ASPIRIN [Concomitant]
     Indication: CARDIAC DISORDER
     Dosage: YEARS
     Route: 065
  7. FELODIPINE [Concomitant]
     Indication: HYPERTENSION
     Dosage: YEARS
     Route: 065
  8. ZETIA [Concomitant]
     Indication: BLOOD CHOLESTEROL INCREASED
     Dosage: YEARS
     Route: 065
  9. ALL OTHER THERAPEUTICS [Concomitant]
     Indication: MEDICAL DIET
     Dosage: FOR PAST 1 YEAR
     Route: 065
  10. NAMENDA [Concomitant]
     Indication: AMNESIA
     Dosage: YEARS
     Route: 065
  11. CITRACAL [Concomitant]
     Indication: MEDICAL DIET
     Dosage: YEARS
     Route: 065
  12. VITAMIN [Concomitant]
     Indication: MEDICAL DIET
     Dosage: YEARS
     Route: 065
  13. VITAMIN B1 TAB [Concomitant]
     Indication: MEDICAL DIET
     Dosage: YEARS
     Route: 065
  14. IMODIUM MULTI-SYMPTOM RELIEF [Suspect]
     Route: 048
     Dates: start: 20120528, end: 20120528
  15. LEVOXYL [Concomitant]
     Indication: THYROID DISORDER
     Route: 065
  16. NEXIUM [Concomitant]
     Indication: GASTROOESOPHAGEAL REFLUX DISEASE
     Route: 065
  17. VITAMIN D [Concomitant]
     Indication: MEDICAL DIET
     Dosage: YEARS
     Route: 065
  18. SPIRONOLACTONE [Concomitant]
     Indication: HYPERTENSION
     Dosage: YEARS
     Route: 065
  19. IMODIUM MULTI-SYMPTOM RELIEF [Suspect]
     Indication: DIARRHOEA
     Route: 048
     Dates: start: 20120525, end: 20120527
  20. IMODIUM MULTI-SYMPTOM RELIEF [Suspect]
     Route: 048
  21. PREDNISONE [Concomitant]
     Indication: MYALGIA
     Dosage: FROM 3-4 MONTHS
     Route: 065
  22. EVISTA [Concomitant]
     Indication: OSTEOPOROSIS
     Route: 065

REACTIONS (2)
  - WEIGHT DECREASED [None]
  - RASH PRURITIC [None]
